FAERS Safety Report 23425988 (Version 1)
Quarter: 2024Q1

REPORT INFORMATION
  Report Type: Spontaneous
  Country: CN (occurrence: CN)
  Receive Date: 20240122
  Receipt Date: 20240122
  Transmission Date: 20240410
  Serious: Yes (Hospitalization)
  Sender: FDA-Public Use
  Company Number: None

PATIENT
  Age: 58 Year
  Sex: Female
  Weight: 60 kg

DRUGS (3)
  1. OLANZAPINE [Suspect]
     Active Substance: OLANZAPINE
     Indication: Psychotic symptom
     Dosage: 10MG,QD
     Route: 048
     Dates: start: 20231130, end: 20231229
  2. OLANZAPINE [Suspect]
     Active Substance: OLANZAPINE
     Dates: start: 20231213
  3. OLANZAPINE [Suspect]
     Active Substance: OLANZAPINE
     Dates: start: 20231220

REACTIONS (1)
  - Extrapyramidal disorder [Recovering/Resolving]

NARRATIVE: CASE EVENT DATE: 20231210
